FAERS Safety Report 6209913-1 (Version None)
Quarter: 2009Q2

REPORT INFORMATION
  Report Type: 
  Country: None (occurrence: None)
  Receive Date: 20090601
  Receipt Date: 20090519
  Transmission Date: 20091009
  Serious: Yes (Hospitalization)
  Sender: FDA-Public Use
  Company Number: VE-PFIZER INC-2009216374

PATIENT
  Age: 51 Year

DRUGS (1)
  1. CHAMPIX [Suspect]
     Indication: SMOKING CESSATION THERAPY
     Route: 048
     Dates: start: 20090501, end: 20090506

REACTIONS (4)
  - DYSPNOEA [None]
  - HYPERHIDROSIS [None]
  - LARYNGEAL OEDEMA [None]
  - MUSCLE SPASMS [None]
